FAERS Safety Report 22525042 (Version 1)
Quarter: 2023Q2

REPORT INFORMATION
  Report Type: Spontaneous
  Country: JP (occurrence: JP)
  Receive Date: 20230606
  Receipt Date: 20230606
  Transmission Date: 20230722
  Serious: Yes (Death, Life-Threatening, Other)
  Sender: FDA-Public Use
  Company Number: JP-PFIZER INC-PV202300097667

PATIENT
  Age: 9 Year
  Sex: Male

DRUGS (2)
  1. MITOXANTRONE HYDROCHLORIDE [Suspect]
     Active Substance: MITOXANTRONE HYDROCHLORIDE
     Indication: Chemotherapy
     Dosage: 5 MG/M2
     Dates: start: 19891014
  2. ETOPOSIDE [Suspect]
     Active Substance: ETOPOSIDE
     Indication: Chemotherapy
     Dosage: UNK
     Dates: start: 19891014

REACTIONS (6)
  - Wernicke^s encephalopathy [Fatal]
  - Respiratory failure [Fatal]
  - Pneumonia [Fatal]
  - Coma [Unknown]
  - Granulocytopenia [Unknown]
  - Sepsis [Unknown]

NARRATIVE: CASE EVENT DATE: 19891026
